FAERS Safety Report 6034286-7 (Version None)
Quarter: 2009Q1

REPORT INFORMATION
  Report Type: 
  Country: None (occurrence: None)
  Receive Date: 20090112
  Receipt Date: 20081231
  Transmission Date: 20090719
  Serious: Yes (Other)
  Sender: FDA-Public Use
  Company Number: US-PFIZER INC-2009150634

PATIENT
  Sex: Male

DRUGS (3)
  1. CHANTIX [Suspect]
     Indication: SMOKING CESSATION THERAPY
     Dates: start: 20081201, end: 20081228
  2. ANTIEPILEPTICS [Concomitant]
     Indication: CONVULSION
     Dosage: UNK
  3. LAMICTAL [Concomitant]
     Indication: CONVULSION

REACTIONS (1)
  - CONVULSION [None]
